FAERS Safety Report 23305659 (Version 1)
Quarter: 2023Q4

REPORT INFORMATION
  Report Type: Spontaneous
  Country: US (occurrence: US)
  Receive Date: 20231218
  Receipt Date: 20231218
  Transmission Date: 20240109
  Serious: Yes (Hospitalization, Other)
  Sender: FDA-Public Use
  Company Number: US-NOVOPROD-1150315

PATIENT
  Age: 55 Year
  Sex: Female

DRUGS (1)
  1. SEMAGLUTIDE [Suspect]
     Active Substance: SEMAGLUTIDE
     Indication: Menopause
     Dosage: UNK
     Route: 058
     Dates: start: 2022

REACTIONS (6)
  - Intestinal obstruction [Unknown]
  - Plastic surgery [Unknown]
  - Counterfeit product administered [Not Recovered/Not Resolved]
  - Illness anxiety disorder [Unknown]
  - Muscle atrophy [Unknown]
  - Fluid intake reduced [Unknown]

NARRATIVE: CASE EVENT DATE: 20220101
